FAERS Safety Report 20434368 (Version 3)
Quarter: 2022Q1

REPORT INFORMATION
  Report Type: Spontaneous
  Country: BR (occurrence: BR)
  Receive Date: 20220206
  Receipt Date: 20220310
  Transmission Date: 20220423
  Serious: Yes (Hospitalization, Other)
  Sender: FDA-Public Use
  Company Number: BR-NOVARTISPH-NVSC2022BR021251

PATIENT
  Age: 78 Year
  Sex: Female
  Weight: 73.8 kg

DRUGS (20)
  1. METFORMIN HYDROCHLORIDE\VILDAGLIPTIN [Suspect]
     Active Substance: METFORMIN HYDROCHLORIDE\VILDAGLIPTIN
     Indication: Diabetes mellitus
     Dosage: UNK, (56 PILLS, STARTED: 7 OR 8 YEARS AND STOP AT A WEEK AGO)
     Route: 065
  2. METFORMIN HYDROCHLORIDE\VILDAGLIPTIN [Suspect]
     Active Substance: METFORMIN HYDROCHLORIDE\VILDAGLIPTIN
     Dosage: 1 DOSAGE FORM, BID (STARTED 7 OR 8 YEARS AGO AND STOPPED LAST WEEK)
     Route: 048
  3. DAPAGLIFLOZIN [Concomitant]
     Active Substance: DAPAGLIFLOZIN
     Indication: Diabetes mellitus
     Dosage: UNK
     Route: 065
  4. DAPAGLIFLOZIN [Concomitant]
     Active Substance: DAPAGLIFLOZIN
     Dosage: 2 DOSAGE FORM, QD (STARTED: ABOUT 7 OR 8 YEARS AGO)
     Route: 048
  5. VITAMIN D [Concomitant]
     Active Substance: VITAMIN D NOS
     Indication: Vitamin supplementation
     Dosage: UNK
     Route: 065
  6. VITAMIN D [Concomitant]
     Active Substance: VITAMIN D NOS
     Dosage: 1 DOSAGE FORM, QD
     Route: 065
  7. GLICLAZIDE [Concomitant]
     Active Substance: GLICLAZIDE
     Indication: Diabetes mellitus
     Dosage: UNK
     Route: 065
  8. GLICLAZIDE [Concomitant]
     Active Substance: GLICLAZIDE
     Dosage: 2 DOSAGE FORM, QD (STARTED: ABOUT 7 OR 8 YEARS AGO)
     Route: 048
  9. ASPIRIN [Concomitant]
     Active Substance: ASPIRIN
     Indication: Anticoagulant therapy
     Dosage: UNK
     Route: 065
  10. ASPIRIN [Concomitant]
     Active Substance: ASPIRIN
     Dosage: 1 DOSAGE FORM
     Route: 048
     Dates: start: 202108
  11. ASPIRIN [Concomitant]
     Active Substance: ASPIRIN
     Indication: Product used for unknown indication
     Dosage: UNK
     Route: 065
  12. DAFLON [Concomitant]
     Indication: Anticoagulant therapy
     Dosage: 1 DOSAGE FORM, QD (STARTED: A WEEK AGO)
     Route: 048
  13. LINAGLIPTIN\METFORMIN HYDROCHLORIDE [Concomitant]
     Active Substance: LINAGLIPTIN\METFORMIN HYDROCHLORIDE
     Indication: Diabetes mellitus
     Dosage: 1 DOSAGE FORM, QD (STARTED: ABOUT 15)
     Route: 048
  14. GLIFAGE [Concomitant]
     Active Substance: METFORMIN HYDROCHLORIDE
     Indication: Diabetes mellitus
     Dosage: 1 DOSAGE FORM, QD (STARTED: ABOUT 15)
     Route: 048
  15. COPLEX [Concomitant]
     Indication: Anticoagulant therapy
     Dosage: 1 DOSAGE FORM
     Route: 048
     Dates: start: 202108
  16. METOPROLOL SUCCINATE [Concomitant]
     Active Substance: METOPROLOL SUCCINATE
     Indication: Hypertension
     Dosage: 1 DOSAGE FORM, QD (STARTED: 20 YEARS AGO)
     Route: 048
  17. ALPRAZOLAM [Concomitant]
     Active Substance: ALPRAZOLAM
     Indication: Hypertension
     Dosage: 1 DOSAGE FORM, QD (STARTED: 20 YEARS AGO)
     Route: 048
  18. ASEA HCT [Concomitant]
     Indication: Hypertension
     Dosage: 1 DOSAGE FORM, QD (20 YEARS AGO)
     Route: 048
     Dates: end: 20220207
  19. LOSARTAN POTASSIUM [Concomitant]
     Active Substance: LOSARTAN POTASSIUM
     Indication: Hypertension
     Dosage: 1 DOSAGE FORM, QD
     Route: 048
  20. AMLODIPINE [Concomitant]
     Active Substance: AMLODIPINE BESYLATE
     Indication: Hypertension
     Dosage: 1 DOSAGE FORM, QD (STARTED: 20 YEARS AGO)
     Route: 048

REACTIONS (25)
  - Ischaemic stroke [Recovered/Resolved with Sequelae]
  - Pain in extremity [Recovered/Resolved]
  - Movement disorder [Recovered/Resolved]
  - Limb deformity [Not Recovered/Not Resolved]
  - Renal cyst [Not Recovered/Not Resolved]
  - Blood pressure abnormal [Unknown]
  - Diabetes mellitus [Recovered/Resolved]
  - Joint dislocation [Not Recovered/Not Resolved]
  - Gait disturbance [Recovering/Resolving]
  - Arthralgia [Not Recovered/Not Resolved]
  - Blood potassium increased [Not Recovered/Not Resolved]
  - Blood creatinine increased [Recovered/Resolved]
  - Asthenia [Recovering/Resolving]
  - Anaemia [Unknown]
  - Blood cholesterol increased [Unknown]
  - Malaise [Recovered/Resolved]
  - Renal disorder [Unknown]
  - Blood triglycerides increased [Unknown]
  - Haemoglobin increased [Unknown]
  - Fall [Unknown]
  - Blood pressure fluctuation [Not Recovered/Not Resolved]
  - Hypersensitivity [Recovered/Resolved]
  - Hypertension [Not Recovered/Not Resolved]
  - Feeling abnormal [Recovered/Resolved]
  - Vomiting [Not Recovered/Not Resolved]

NARRATIVE: CASE EVENT DATE: 20210804
